FAERS Safety Report 7284824-1 (Version None)
Quarter: 2011Q1

REPORT INFORMATION
  Report Type: 
  Country: None (occurrence: None)
  Receive Date: 20110210
  Receipt Date: 20110201
  Transmission Date: 20110831
  Serious: No
  Sender: FDA-Public Use
  Company Number: US-PFIZER INC-2011023439

PATIENT
  Sex: Male
  Weight: 68.02 kg

DRUGS (2)
  1. PROSCAR [Concomitant]
     Indication: PROSTATOMEGALY
     Dosage: UNK
  2. LIPITOR [Suspect]
     Indication: BLOOD CHOLESTEROL INCREASED
     Dosage: 80 MG, 1X/DAY
     Route: 048
     Dates: start: 20100628, end: 20110107

REACTIONS (1)
  - HEPATIC ENZYME INCREASED [None]
